FAERS Safety Report 7964917-3 (Version None)
Quarter: 2011Q4

REPORT INFORMATION
  Report Type: 
  Country: None (occurrence: None)
  Receive Date: 20111208
  Receipt Date: 20110926
  Transmission Date: 20120403
  Serious: Yes (Other)
  Sender: FDA-Public Use
  Company Number: US-ROCHE-1019001

PATIENT
  Sex: Female

DRUGS (2)
  1. PEGINTERFERON ALFA-2A [Suspect]
     Indication: HEPATITIS C
     Dates: start: 20110716, end: 20110820
  2. COPEGUS [Suspect]
     Indication: HEPATITIS C
     Dates: start: 20110716, end: 20110820

REACTIONS (4)
  - HEART RATE INCREASED [None]
  - ANAEMIA [None]
  - ASTHENIA [None]
  - LOSS OF CONSCIOUSNESS [None]
